FAERS Safety Report 9948718 (Version 2)
Quarter: 2014Q1

REPORT INFORMATION
  Report Type: Spontaneous
  Country: US (occurrence: US)
  Receive Date: 20140303
  Receipt Date: 20140303
  Transmission Date: 20141002
  Serious: Yes (Other)
  Sender: FDA-Public Use
  Company Number: US-ROCHE-1357527

PATIENT
  Age: 71 Year
  Sex: Male
  Weight: 90.35 kg

DRUGS (2)
  1. XOLAIR [Suspect]
     Indication: ASTHMA
     Route: 058
     Dates: start: 20121129
  2. XOLAIR [Suspect]
     Route: 058
     Dates: start: 20140227

REACTIONS (1)
  - Pulmonary mass [Not Recovered/Not Resolved]
